FAERS Safety Report 21760731 (Version 1)
Quarter: 2022Q4

REPORT INFORMATION
  Report Type: Spontaneous
  Country: FR (occurrence: FR)
  Receive Date: 20221221
  Receipt Date: 20221221
  Transmission Date: 20230112
  Serious: Yes (Death, Life-Threatening)
  Sender: FDA-Public Use
  Company Number: None

PATIENT
  Age: 68 Year
  Sex: Male

DRUGS (2)
  1. NOREPINEPHRINE [Interacting]
     Active Substance: NOREPINEPHRINE
     Indication: Hypotension
     Dosage: 6 MICROGRAM/KILOGRAM, QMINUTE
     Route: 042
     Dates: start: 20220628, end: 20220705
  2. ARGIPRESSIN [Interacting]
     Active Substance: ARGIPRESSIN
     Indication: Hypotension
     Dosage: 1.5 INTERNATIONAL UNIT, QH
     Route: 042
     Dates: start: 20220628, end: 20220701

REACTIONS (2)
  - Intestinal ischaemia [Fatal]
  - Drug interaction [Unknown]

NARRATIVE: CASE EVENT DATE: 20220707
